FAERS Safety Report 4752171-5 (Version None)
Quarter: 2005Q3

REPORT INFORMATION
  Report Type: 
  Country: None (occurrence: None)
  Receive Date: 20050824
  Receipt Date: 20050824
  Transmission Date: 20060218
  Serious: No
  Sender: FDA-Public Use
  Company Number: None

PATIENT
  Age: 38 Year
  Sex: Female
  Weight: 164.2021 kg

DRUGS (12)
  1. AVINZA [Suspect]
     Indication: PAIN
     Dosage: 30 MG DAILY PO
     Route: 048
     Dates: start: 20050502, end: 20050507
  2. SYNTHROID [Concomitant]
  3. REGLAN [Concomitant]
  4. DESYREL [Concomitant]
  5. SPIRIVA [Concomitant]
  6. HEPARIN [Concomitant]
  7. NEURONTIN [Concomitant]
  8. LOPID [Concomitant]
  9. FERRO-TAB [Concomitant]
  10. NOVOLIN [Concomitant]
  11. PEPCID [Concomitant]
  12. KEFLEX [Concomitant]

REACTIONS (4)
  - ACUTE PRERENAL FAILURE [None]
  - GENERAL PHYSICAL HEALTH DETERIORATION [None]
  - METABOLIC DISORDER [None]
  - RENAL FAILURE ACUTE [None]
